FAERS Safety Report 7936952-2 (Version None)
Quarter: 2011Q4

REPORT INFORMATION
  Report Type: 
  Country: None (occurrence: None)
  Receive Date: 20111123
  Receipt Date: 20111116
  Transmission Date: 20120403
  Serious: Yes (Hospitalization, Other)
  Sender: FDA-Public Use
  Company Number: US-ABBOTT-11P-163-0853915-00

PATIENT
  Sex: Female
  Weight: 51.756 kg

DRUGS (38)
  1. LOMOTIL [Concomitant]
     Indication: PRODUCT USED FOR UNKNOWN INDICATION
     Dosage: 2 OR 3 AS NEEDED
  2. POTASSIUM [Concomitant]
     Indication: PRODUCT USED FOR UNKNOWN INDICATION
  3. VITAMIN B-12 [Concomitant]
     Indication: PRODUCT USED FOR UNKNOWN INDICATION
     Dosage: ONCE MONTHLY, 1000 MCG/ML
  4. IMODIUM [Concomitant]
     Indication: PRODUCT USED FOR UNKNOWN INDICATION
  5. LOVAZA [Concomitant]
     Indication: PRODUCT USED FOR UNKNOWN INDICATION
  6. HUMIRA [Suspect]
     Dates: end: 20110901
  7. CARVEDILOL [Concomitant]
     Indication: CARDIAC DISORDER
  8. ZOFRAN [Concomitant]
     Indication: PRODUCT USED FOR UNKNOWN INDICATION
     Dosage: ONCE A DAY, AS NEEDED
  9. DIAZEPAM [Concomitant]
     Indication: INSOMNIA
     Dosage: AT BEDTIME
  10. DIPHENOXYLATE HCL + ATROPINE SULFATE [Concomitant]
     Indication: PRODUCT USED FOR UNKNOWN INDICATION
  11. DULCOLAX [Concomitant]
     Indication: PRODUCT USED FOR UNKNOWN INDICATION
  12. FENTANYL [Concomitant]
     Indication: PRODUCT USED FOR UNKNOWN INDICATION
  13. LEXAPRO [Concomitant]
     Indication: ANXIETY
  14. CARVEDILOL [Concomitant]
  15. CALCITRIOL [Concomitant]
     Indication: PRODUCT USED FOR UNKNOWN INDICATION
  16. RESTORIL [Concomitant]
     Indication: PRODUCT USED FOR UNKNOWN INDICATION
  17. DULOXETINE HYDROCHLORIDE [Concomitant]
     Indication: PRODUCT USED FOR UNKNOWN INDICATION
  18. HUMIRA [Suspect]
     Dates: start: 20110512, end: 20110512
  19. NEXIUM [Concomitant]
     Indication: GASTROOESOPHAGEAL REFLUX DISEASE
  20. VITAMIN D [Concomitant]
     Indication: PRODUCT USED FOR UNKNOWN INDICATION
  21. TEMAZEPAM [Concomitant]
     Indication: PRODUCT USED FOR UNKNOWN INDICATION
  22. HUMIRA [Suspect]
     Indication: CROHN'S DISEASE
     Dates: start: 20110401, end: 20110401
  23. FOLIC ACID [Concomitant]
     Indication: PRODUCT USED FOR UNKNOWN INDICATION
  24. LOMOTIL [Concomitant]
     Dosage: 2.5 MG - 0.025 MG
  25. CLINDAMYCIN [Concomitant]
     Indication: PRODUCT USED FOR UNKNOWN INDICATION
     Dosage: BEFORE DENTAL VISITS
  26. CIPROFLOXACIN [Concomitant]
     Indication: CROHN'S DISEASE
  27. PREDNISONE [Concomitant]
     Indication: PRODUCT USED FOR UNKNOWN INDICATION
  28. ASPIRIN [Concomitant]
     Indication: PRODUCT USED FOR UNKNOWN INDICATION
     Dosage: DELAYED RELEASE, ONE IN ONE DAY
  29. LASIX [Concomitant]
     Indication: FLUID RETENTION
     Dosage: ONE DAILY, AND AS NEEDED
  30. VALIUM [Concomitant]
     Indication: PRODUCT USED FOR UNKNOWN INDICATION
     Dosage: THREE TIMES A DAY, AS NEEDED
  31. PARTICLES/CRYSTALS [Concomitant]
     Indication: PRODUCT USED FOR UNKNOWN INDICATION
  32. BENADRYL [Concomitant]
     Indication: PRODUCT USED FOR UNKNOWN INDICATION
  33. VITAMIN TAB [Concomitant]
     Indication: PRODUCT USED FOR UNKNOWN INDICATION
  34. IRON [Concomitant]
     Indication: PRODUCT USED FOR UNKNOWN INDICATION
     Route: 042
  35. ARANESP [Concomitant]
     Indication: PRODUCT USED FOR UNKNOWN INDICATION
  36. POTASSIUM CHLORIDE [Concomitant]
     Indication: PRODUCT USED FOR UNKNOWN INDICATION
     Dosage: ER
  37. LOVENOX [Concomitant]
     Indication: PRODUCT USED FOR UNKNOWN INDICATION
  38. PANTOPRAZOLE [Concomitant]
     Indication: PRODUCT USED FOR UNKNOWN INDICATION

REACTIONS (34)
  - ASTHENIA [None]
  - MAGNESIUM DEFICIENCY [None]
  - AGITATION [None]
  - PAIN [None]
  - ABDOMINAL DISCOMFORT [None]
  - MANIA [None]
  - INSOMNIA [None]
  - NAUSEA [None]
  - VOMITING [None]
  - ELECTROLYTE IMBALANCE [None]
  - METABOLIC ACIDOSIS [None]
  - CHEST PAIN [None]
  - FATIGUE [None]
  - BACK PAIN [None]
  - HYPOKALAEMIA [None]
  - BONE PAIN [None]
  - OEDEMA PERIPHERAL [None]
  - BURNING SENSATION [None]
  - PAINFUL RESPIRATION [None]
  - JOINT INJURY [None]
  - MUSCLE SPASMS [None]
  - HYPOPHAGIA [None]
  - MYALGIA [None]
  - DISCOMFORT [None]
  - MENTAL IMPAIRMENT [None]
  - RESTLESSNESS [None]
  - NERVOUSNESS [None]
  - ANAEMIA [None]
  - PARAESTHESIA [None]
  - DRUG INEFFECTIVE [None]
  - FALL [None]
  - LIMB INJURY [None]
  - WEIGHT DECREASED [None]
  - HYPOAESTHESIA [None]
